FAERS Safety Report 11948576 (Version 3)
Quarter: 2020Q3

REPORT INFORMATION
  Report Type: Report from Study
  Country: CA (occurrence: CA)
  Receive Date: 20160125
  Receipt Date: 20200825
  Transmission Date: 20201104
  Serious: Yes (Other)
  Sender: FDA-Public Use
  Company Number: ALCN2015CA005852

PATIENT
  Age: 81 Year
  Sex: Female

DRUGS (2)
  1. BROLUCIZUMAB. [Suspect]
     Active Substance: BROLUCIZUMAB
     Indication: NEOVASCULAR AGE-RELATED MACULAR DEGENERATION
     Dosage: 6 MG, UNK
     Route: 031
     Dates: start: 20150814
  2. VALSARTAN. [Concomitant]
     Active Substance: VALSARTAN
     Indication: HYPERTENSION
     Dosage: UNK
     Route: 048
     Dates: start: 20110101

REACTIONS (1)
  - Retinal artery thrombosis [Not Recovered/Not Resolved]

NARRATIVE: CASE EVENT DATE: 20150915
